FAERS Safety Report 5430267-2 (Version None)
Quarter: 2007Q3

REPORT INFORMATION
  Report Type: 
  Country: None (occurrence: None)
  Receive Date: 20070731
  Receipt Date: 20070416
  Transmission Date: 20080115
  Serious: No
  Sender: FDA-Public Use
  Company Number: US200704003664

PATIENT
  Age: 64 Year
  Sex: Female

DRUGS (3)
  1. BYETTA [Suspect]
     Indication: TYPE 2 DIABETES MELLITUS
     Dosage: 5 UG, 2/D, SUBCUTANEOUS
     Route: 058
     Dates: start: 20060401
  2. EXENATIDE PEN, DISPOSABLE DEVICE (EXENATIDE PEN) PEN,DISPOSABLE [Concomitant]
  3. GLUCOPHAGE [Concomitant]

REACTIONS (5)
  - ABNORMAL FAECES [None]
  - CATARACT [None]
  - FLATULENCE [None]
  - HYPOACUSIS [None]
  - VISUAL ACUITY REDUCED [None]
